FAERS Safety Report 7159901-6 (Version None)
Quarter: 2010Q4

REPORT INFORMATION
  Report Type: 
  Country: None (occurrence: None)
  Receive Date: 20101214
  Receipt Date: 20101201
  Transmission Date: 20110411
  Serious: Yes (Hospitalization, Other)
  Sender: FDA-Public Use
  Company Number: PHHY2009MX15297

PATIENT
  Age: 44 Year
  Sex: Male

DRUGS (8)
  1. DIOVAN HCT [Suspect]
     Indication: HYPERTENSION
     Dosage: 320/12.5 MG, 2 TABS PER DAY
     Route: 048
     Dates: start: 19981201
  2. DIOVAN HCT [Suspect]
     Dosage: 160/12.5 MG, 2 TABS PER DAY
     Route: 048
     Dates: start: 20070910, end: 20090328
  3. DIOVAN HCT [Suspect]
     Dosage: UNK
     Dates: start: 20090616
  4. DIOVAN HCT [Suspect]
     Dosage: 80/12.5MG, 1 TABLET PER DAY
     Dates: start: 20100401
  5. CYMBALTA [Concomitant]
  6. ASPIRIN [Concomitant]
  7. PLAVIX [Concomitant]
  8. ZINTREPID [Concomitant]

REACTIONS (6)
  - CARDIAC OPERATION [None]
  - CORONARY ARTERY OCCLUSION [None]
  - PANCREATIC CARCINOMA [None]
  - PANCREATIC OPERATION [None]
  - PANCREATITIS [None]
  - PHAEOCHROMOCYTOMA EXCISION [None]
